FAERS Safety Report 18986920 (Version 2)
Quarter: 2021Q2

REPORT INFORMATION
  Report Type: Spontaneous
  Country: JP (occurrence: JP)
  Receive Date: 20210309
  Receipt Date: 20210611
  Transmission Date: 20210717
  Serious: Yes (Death, Other)
  Sender: FDA-Public Use
  Company Number: JP-PFIZER INC-2021247263

PATIENT
  Age: 70 Year
  Sex: Male
  Weight: 69.7 kg

DRUGS (3)
  1. BAVENCIO [Suspect]
     Active Substance: AVELUMAB
     Indication: RENAL CELL CARCINOMA
     Dosage: 10 MG/KG
     Route: 041
     Dates: start: 20210303
  2. INLYTA [Suspect]
     Active Substance: AXITINIB
     Indication: RENAL CELL CARCINOMA
     Dosage: 5 MG, 2X/DAY
     Route: 048
     Dates: start: 20210303, end: 20210305
  3. WARFARIN [Concomitant]
     Active Substance: WARFARIN
     Indication: AORTIC VALVE REPLACEMENT
     Dosage: 1 MG, 1X/DAY
     Route: 048

REACTIONS (8)
  - Tachycardia [Unknown]
  - C-reactive protein increased [Unknown]
  - Dyspnoea [Unknown]
  - Cardiac failure [Unknown]
  - Infection [Fatal]
  - Pyrexia [Unknown]
  - Cardio-respiratory arrest [Unknown]
  - Wheezing [Unknown]

NARRATIVE: CASE EVENT DATE: 202103
